FAERS Safety Report 12471989 (Version 1)
Quarter: 2016Q2

REPORT INFORMATION
  Report Type: Spontaneous
  Country: US (occurrence: None)
  Receive Date: 20160615
  Receipt Date: 20160615
  Transmission Date: 20160815
  Serious: Yes (Hospitalization)
  Sender: FDA-Public Use
  Company Number: None

PATIENT
  Age: 70 Year
  Sex: Female
  Weight: 96.9 kg

DRUGS (17)
  1. DIG [Concomitant]
  2. NORCO [Concomitant]
     Active Substance: ACETAMINOPHEN\HYDROCODONE BITARTRATE
  3. VITAMIN D [Concomitant]
     Active Substance: CHOLECALCIFEROL
  4. CARTIA XT [Concomitant]
     Active Substance: DILTIAZEM HYDROCHLORIDE
  5. ZETIA [Concomitant]
     Active Substance: EZETIMIBE
  6. PROTONIX [Concomitant]
     Active Substance: PANTOPRAZOLE SODIUM
  7. LYRICA [Concomitant]
     Active Substance: PREGABALIN
  8. ELAVIL [Concomitant]
     Active Substance: AMITRIPTYLINE HYDROCHLORIDE
  9. TENORMIN [Concomitant]
     Active Substance: ATENOLOL
  10. ENBREL [Concomitant]
     Active Substance: ETANERCEPT
  11. COUMADIN [Suspect]
     Active Substance: WARFARIN SODIUM
     Indication: ATRIAL FIBRILLATION
     Dosage: 5MG MTTHFSAT PO?CHRONIC
     Route: 048
  12. COUMADIN [Suspect]
     Active Substance: WARFARIN SODIUM
     Indication: ATRIAL FIBRILLATION
     Dosage: 7.5MG Q WED/SUN PO?CHRONIC
     Route: 048
  13. CYMBALTA [Concomitant]
     Active Substance: DULOXETINE HYDROCHLORIDE
  14. BUTRANS [Concomitant]
     Active Substance: BUPRENORPHINE
  15. VITAMIN B12 [Concomitant]
     Active Substance: CYANOCOBALAMIN
  16. PRINZIDE [Concomitant]
     Active Substance: HYDROCHLOROTHIAZIDE\LISINOPRIL
  17. THERAGRAN [Concomitant]
     Active Substance: VITAMINS

REACTIONS (5)
  - Haemarthrosis [None]
  - Anaemia of chronic disease [None]
  - Haemorrhagic anaemia [None]
  - International normalised ratio increased [None]
  - Coagulopathy [None]

NARRATIVE: CASE EVENT DATE: 20150830
